FAERS Safety Report 10190872 (Version 1)
Quarter: 2014Q2

REPORT INFORMATION
  Report Type: Spontaneous
  Country: US (occurrence: None)
  Receive Date: 20140521
  Receipt Date: 20140521
  Transmission Date: 20141212
  Serious: No
  Sender: FDA-Public Use
  Company Number: None

PATIENT
  Age: 52 Year
  Sex: Male
  Weight: 86.18 kg

DRUGS (1)
  1. ZOLOFT 100MG [Suspect]
     Indication: DEPRESSION
     Dosage: 1, ONCE DAILY, TAKEN BY MOUTH
     Route: 048
     Dates: start: 20140518

REACTIONS (5)
  - Dyspnoea [None]
  - Libido decreased [None]
  - Tremor [None]
  - Myalgia [None]
  - Feeling abnormal [None]
